FAERS Safety Report 6614342-2 (Version None)
Quarter: 2010Q1

REPORT INFORMATION
  Report Type: 
  Country: None (occurrence: None)
  Receive Date: 20100303
  Receipt Date: 20100303
  Transmission Date: 20100710
  Serious: Yes (Hospitalization)
  Sender: FDA-Public Use
  Company Number: None

PATIENT
  Sex: Female
  Weight: 105.9 kg

DRUGS (2)
  1. CARBOPLATIN [Suspect]
     Dosage: 488 MG
  2. TAXOL [Suspect]
     Dosage: 350 MG

REACTIONS (5)
  - FALL [None]
  - FATIGUE [None]
  - HYPOPHAGIA [None]
  - HYPOTENSION [None]
  - MOVEMENT DISORDER [None]
